FAERS Safety Report 6024331-7 (Version None)
Quarter: 2008Q4

REPORT INFORMATION
  Report Type: 
  Country: None (occurrence: None)
  Receive Date: 20081229
  Receipt Date: 20081210
  Transmission Date: 20090506
  Serious: Yes (Hospitalization, Other)
  Sender: FDA-Public Use
  Company Number: 2005-06-1726

PATIENT
  Age: 73 Year
  Sex: Female
  Weight: 58 kg

DRUGS (6)
  1. PEG-INTRON [Suspect]
     Indication: HEPATITIS C
     Dosage: 80 MCG;/WK;SC; 40 MCG;/WK;SC; 60 MCG;/WK;SC; 40 MCG;/WK;SC
     Route: 058
     Dates: start: 20050330, end: 20050413
  2. PEG-INTRON [Suspect]
     Indication: HEPATITIS C
     Dosage: 80 MCG;/WK;SC; 40 MCG;/WK;SC; 60 MCG;/WK;SC; 40 MCG;/WK;SC
     Route: 058
     Dates: start: 20050420, end: 20050420
  3. PEG-INTRON [Suspect]
     Indication: HEPATITIS C
     Dosage: 80 MCG;/WK;SC; 40 MCG;/WK;SC; 60 MCG;/WK;SC; 40 MCG;/WK;SC
     Route: 058
     Dates: start: 20050427, end: 20050427
  4. PEG-INTRON [Suspect]
     Indication: HEPATITIS C
     Dosage: 80 MCG;/WK;SC; 40 MCG;/WK;SC; 60 MCG;/WK;SC; 40 MCG;/WK;SC
     Route: 058
     Dates: start: 20050513, end: 20050603
  5. REBETOL [Suspect]
     Indication: HEPATITIS C
     Dosage: 600 MG;QD;PO; 400 MG;QD;PO
     Route: 048
     Dates: start: 20050330, end: 20050426
  6. REBETOL [Suspect]
     Indication: HEPATITIS C
     Dosage: 600 MG;QD;PO; 400 MG;QD;PO
     Route: 048
     Dates: start: 20050427, end: 20050506

REACTIONS (5)
  - ABDOMINAL DISCOMFORT [None]
  - ANAEMIA MACROCYTIC [None]
  - ANAPHYLACTIC TRANSFUSION REACTION [None]
  - PLATELET COUNT DECREASED [None]
  - PURPURA [None]
